FAERS Safety Report 8721279 (Version 2)
Quarter: 2012Q4

REPORT INFORMATION
  Report Type: 
  Country: JP (occurrence: JP)
  Receive Date: 20120813
  Receipt Date: 20121217
  Transmission Date: 20130627
  Serious: Yes (Other)
  Sender: FDA-Public Use
  Company Number: JP-009507513-2012SP032458

PATIENT
  Age: 61 Year
  Sex: Male
  Weight: 77 kg

DRUGS (14)
  1. PEGINTRON [Suspect]
     Indication: CHRONIC HEPATITIS C
     Dosage: 1.5 Microgram per kilogram, qw
     Route: 058
     Dates: start: 20120411, end: 20120501
  2. PEGINTRON [Suspect]
     Dosage: 1 Microgram per kilogram, qw,daily dose unknown
     Route: 058
     Dates: start: 20120508, end: 20120918
  3. REBETOL [Suspect]
     Indication: CHRONIC HEPATITIS C
     Dosage: 800 mg, qd
     Route: 048
     Dates: start: 20120411, end: 20120918
  4. TELAVIC [Suspect]
     Indication: CHRONIC HEPATITIS C
     Dosage: 1500 mg, qd
     Route: 048
     Dates: start: 20120411, end: 20120703
  5. LIVALO [Concomitant]
     Indication: HYPERLIPIDAEMIA
     Dosage: 1 mg, qd FORMULATION: POR
     Route: 048
  6. EPADEL [Concomitant]
     Indication: HYPERLIPIDAEMIA
     Dosage: 1800 mg, qd FORMULATION: POR
     Route: 048
  7. MAGLAX (MAGNESIUM OXIDE) [Concomitant]
     Indication: CONSTIPATION
     Dosage: 990 mg, qd FORMULATION: POR
     Route: 048
  8. POLAPREZINC [Concomitant]
     Indication: GASTRIC ULCER
     Dosage: 150 mg, qd,FORMULATION: POR,
     Route: 048
  9. LANSOPRAZOLE [Concomitant]
     Indication: GASTRIC ULCER
     Dosage: 15 mg, qd,FORMULATION: POR,
     Route: 048
  10. LANSOPRAZOLE [Concomitant]
     Indication: GASTROOESOPHAGEAL REFLUX DISEASE
  11. FEROTYM [Concomitant]
     Indication: IRON DEFICIENCY ANAEMIA
     Dosage: 50 mg, qd,FORMULATION: POR
     Route: 048
  12. CLARITIN REDITABS [Concomitant]
     Indication: PROPHYLAXIS
     Dosage: 10 mg, qd
     Route: 048
  13. EPADEL S [Concomitant]
     Indication: HYPERLIPIDAEMIA
     Route: 048
  14. MAGLAX (MAGNESIUM OXIDE) [Concomitant]
     Indication: CONSTIPATION
     Route: 048

REACTIONS (4)
  - Anaemia [Not Recovered/Not Resolved]
  - Rash [None]
  - Pruritus [None]
  - Platelet count decreased [None]
